FAERS Safety Report 8308908-1 (Version None)
Quarter: 2012Q2

REPORT INFORMATION
  Report Type: 
  Country: None (occurrence: None)
  Receive Date: 20120424
  Receipt Date: 20120419
  Transmission Date: 20120825
  Serious: Yes (Other)
  Sender: FDA-Public Use
  Company Number: AU-AMGEN-AUSSP2012007153

PATIENT
  Sex: Male

DRUGS (1)
  1. NEUPOGEN [Suspect]
     Indication: NEUTROPENIA

REACTIONS (4)
  - AUTOIMMUNE NEUTROPENIA [None]
  - SYSTEMIC INFLAMMATORY RESPONSE SYNDROME [None]
  - DRUG INEFFECTIVE [None]
  - SEPSIS [None]
